FAERS Safety Report 10960188 (Version 3)
Quarter: 2015Q3

REPORT INFORMATION
  Report Type: Spontaneous
  Country: US (occurrence: US)
  Receive Date: 20150327
  Receipt Date: 20150817
  Transmission Date: 20151125
  Serious: Yes (Other)
  Sender: FDA-Public Use
  Company Number: US-BAYER-2015-070657

PATIENT
  Age: 28 Year
  Sex: Female
  Weight: 100 kg

DRUGS (2)
  1. MIRENA [Suspect]
     Active Substance: LEVONORGESTREL
     Indication: CONTRACEPTION
     Dosage: 20 MCG/24HR, CONT
     Route: 015
     Dates: start: 20070815, end: 20130320
  2. AVONEX [Concomitant]
     Active Substance: INTERFERON BETA-1A
     Dosage: 30 MCG/0.5ML, UNK
     Route: 030

REACTIONS (5)
  - Injury [None]
  - Device use error [None]
  - Device difficult to use [None]
  - Pain [None]
  - Embedded device [None]

NARRATIVE: CASE EVENT DATE: 200708
